FAERS Safety Report 8293975-4 (Version None)
Quarter: 2012Q2

REPORT INFORMATION
  Report Type: 
  Country: None (occurrence: None)
  Receive Date: 20120418
  Receipt Date: 20120409
  Transmission Date: 20120825
  Serious: Yes (Death, Hospitalization, Other)
  Sender: FDA-Public Use
  Company Number: JP-PFIZER INC-2012094831

PATIENT
  Age: 31 Year
  Sex: Male

DRUGS (11)
  1. AMIODARONE HYDROCHLORIDE [Suspect]
     Indication: VENTRICULAR FIBRILLATION
     Dosage: 100 MG, DAILY
     Route: 048
     Dates: start: 20041001, end: 20111220
  2. ACARDI [Concomitant]
     Route: 065
  3. ADALAT CC [Concomitant]
  4. ISOSORBIDE MONONITRATE [Concomitant]
  5. DIGOXIN [Concomitant]
  6. SPIRONOLACTONE [Concomitant]
  7. ASPIRIN [Concomitant]
  8. CARVEDILOL [Concomitant]
  9. LASIX [Concomitant]
  10. ALLOPURINOL [Concomitant]
  11. WARFARIN [Concomitant]

REACTIONS (3)
  - CARDIAC FAILURE [None]
  - PNEUMONIA BACTERIAL [None]
  - INTERSTITIAL LUNG DISEASE [None]
